FAERS Safety Report 14461684 (Version 1)
Quarter: 2018Q1

REPORT INFORMATION
  Report Type: Spontaneous
  Country: CA (occurrence: CA)
  Receive Date: 20180130
  Receipt Date: 20180130
  Transmission Date: 20180509
  Serious: Yes (Other)
  Sender: FDA-Public Use
  Company Number: CA-ELI_LILLY_AND_COMPANY-CA201801008615

PATIENT
  Sex: Male

DRUGS (2)
  1. ENTUZITY [Suspect]
     Active Substance: INSULIN HUMAN
     Indication: DIABETES MELLITUS
     Dosage: 500 U, UNKNOWN
     Route: 058
  2. ENTUZITY [Suspect]
     Active Substance: INSULIN HUMAN
     Dosage: 500 U, UNKNOWN
     Route: 058

REACTIONS (2)
  - Haemodialysis [None]
  - Renal disorder [Unknown]
